FAERS Safety Report 8964085 (Version 1)
Quarter: 2012Q4

REPORT INFORMATION
  Report Type: 
  Country: US (occurrence: US)
  Receive Date: 20121213
  Receipt Date: 20121213
  Transmission Date: 20130627
  Serious: Yes (Life-Threatening, Other)
  Sender: FDA-Public Use
  Company Number: CHPA2012US025239

PATIENT
  Age: 75 Year
  Sex: Male

DRUGS (3)
  1. MAALOX UNKNOWN [Suspect]
     Indication: BACK PAIN
     Dosage: One swallow, 3 times per day
     Route: 048
     Dates: start: 2010
  2. FLEXAMIN [Concomitant]
  3. NEXIUM//ESOMEPRAZOLE MAGNESIUM [Concomitant]

REACTIONS (11)
  - Feeling abnormal [Unknown]
  - Ulcer [Unknown]
  - Hypertension [Unknown]
  - Arthritis [Unknown]
  - Bone disorder [Unknown]
  - Prostate tenderness [Unknown]
  - Faeces discoloured [Recovered/Resolved]
  - Carpal tunnel syndrome [Unknown]
  - Ligament injury [Unknown]
  - Off label use [Unknown]
  - Wrong technique in drug usage process [Unknown]
